FAERS Safety Report 24693184 (Version 3)
Quarter: 2025Q2

REPORT INFORMATION
  Report Type: Spontaneous
  Country: PL (occurrence: PL)
  Receive Date: 20241203
  Receipt Date: 20250619
  Transmission Date: 20250716
  Serious: Yes (Disabling, Other)
  Sender: GILEAD
  Company Number: PL-GILEAD-2024-0692431

PATIENT
  Age: 42 Year
  Sex: Female
  Weight: 44 kg

DRUGS (1)
  1. YESCARTA [Suspect]
     Active Substance: AXICABTAGENE CILOLEUCEL
     Indication: Diffuse large B-cell lymphoma
     Route: 042
     Dates: start: 20240527, end: 20240527

REACTIONS (4)
  - Optic atrophy [Not Recovered/Not Resolved]
  - Optic neuritis [Unknown]
  - Cytopenia [Unknown]
  - Disease recurrence [Unknown]

NARRATIVE: CASE EVENT DATE: 20240601
